FAERS Safety Report 5822609-0 (Version None)
Quarter: 2008Q3

REPORT INFORMATION
  Report Type: 
  Country: None (occurrence: None)
  Receive Date: 20080714
  Receipt Date: 20080310
  Transmission Date: 20090109
  Serious: Yes (Other)
  Sender: FDA-Public Use
  Company Number: 552255

PATIENT
  Age: 86 Year
  Sex: Female

DRUGS (3)
  1. BONIVA [Suspect]
     Indication: OSTEOPOROSIS
     Dosage: 150 MG 1 PER MONTH ORAL
     Route: 048
     Dates: start: 20000101
  2. LISINOPRIL [Concomitant]
  3. CALCIUM (CALCIUM) [Concomitant]

REACTIONS (1)
  - BLOOD PRESSURE INCREASED [None]
